FAERS Safety Report 7896421-5 (Version None)
Quarter: 2011Q4

REPORT INFORMATION
  Report Type: 
  Country: None (occurrence: None)
  Receive Date: 20111104
  Receipt Date: 20111104
  Transmission Date: 20120403
  Serious: Yes (Hospitalization, Disabling, Other)
  Sender: FDA-Public Use
  Company Number: None

PATIENT
  Age: 49 Year
  Sex: Female
  Weight: 72.5755 kg

DRUGS (2)
  1. ESTRADERM [Suspect]
     Indication: OOPHORECTOMY
     Dosage: ESTRADERM 1 WEEKLY PATCH DAILY
     Route: 062
  2. PROVERA [Suspect]
     Dosage: PROVERA 1 DAILY ORAL
     Route: 048

REACTIONS (4)
  - PANCREATITIS [None]
  - BREAST CANCER [None]
  - GALLBLADDER DISORDER [None]
  - ASTHMA [None]
